FAERS Safety Report 15653159 (Version 6)
Quarter: 2019Q1

REPORT INFORMATION
  Report Type: Spontaneous
  Country: US (occurrence: US)
  Receive Date: 20181123
  Receipt Date: 20190111
  Transmission Date: 20190417
  Serious: Yes (Death, Hospitalization)
  Sender: FDA-Public Use
  Company Number: US-ACTELION-A-US2018-182159

PATIENT
  Age: 26 Year
  Sex: Female

DRUGS (4)
  1. OXYGEN. [Concomitant]
     Active Substance: OXYGEN
     Dosage: 6 L, UNK
  2. REMODULIN [Suspect]
     Active Substance: TREPROSTINIL
     Indication: PULMONARY ARTERIAL HYPERTENSION
     Dosage: 10MG/ML
     Route: 058
     Dates: start: 201802, end: 201811
  3. VELETRI [Suspect]
     Active Substance: EPOPROSTENOL
     Indication: PULMONARY ARTERIAL HYPERTENSION
     Dosage: 70 NG/KG, PER MIN
     Route: 042
     Dates: start: 201811
  4. VELETRI [Suspect]
     Active Substance: EPOPROSTENOL
     Dosage: 78 NG/KG, PER MIN
     Route: 042
     Dates: end: 20181215

REACTIONS (12)
  - Platelet count decreased [Not Recovered/Not Resolved]
  - Cardiac failure [Fatal]
  - Pain in jaw [Not Recovered/Not Resolved]
  - Headache [Not Recovered/Not Resolved]
  - Blood pressure systolic decreased [Not Recovered/Not Resolved]
  - Pulmonary arterial hypertension [Fatal]
  - Condition aggravated [Fatal]
  - Flushing [Unknown]
  - Oxygen saturation decreased [Unknown]
  - Catheter site haemorrhage [Unknown]
  - Nausea [Not Recovered/Not Resolved]
  - Hypotension [Not Recovered/Not Resolved]

NARRATIVE: CASE EVENT DATE: 20181108
